FAERS Safety Report 15406408 (Version 2)
Quarter: 2018Q3

REPORT INFORMATION
  Report Type: Spontaneous
  Country: US (occurrence: US)
  Receive Date: 20180920
  Receipt Date: 20180928
  Transmission Date: 20181010
  Serious: Yes (Hospitalization)
  Sender: FDA-Public Use
  Company Number: US-TEVA-2018-US-955801

PATIENT
  Age: 25 Year
  Sex: Female

DRUGS (1)
  1. LORAZEPAM. [Suspect]
     Active Substance: LORAZEPAM
     Indication: EPILEPSY
     Route: 065

REACTIONS (3)
  - Drug ineffective [Unknown]
  - Pyrexia [Unknown]
  - Seizure [Unknown]
